FAERS Safety Report 10219607 (Version 1)
Quarter: 2014Q2

REPORT INFORMATION
  Report Type: Spontaneous
  Country: US (occurrence: US)
  Receive Date: 20140605
  Receipt Date: 20140605
  Transmission Date: 20141212
  Serious: Yes (Life-Threatening, Hospitalization)
  Sender: FDA-Public Use
  Company Number: US-GLAXOSMITHKLINE-B0999509A

PATIENT
  Age: 24 Year
  Sex: Female

DRUGS (5)
  1. ACYCLOVIR [Suspect]
     Indication: HERPES SIMPLEX
     Route: 065
  2. PIPERACILLIN + TAZOBACTAM [Suspect]
     Indication: HERPES SIMPLEX
     Route: 065
  3. AZITHROMYCIN [Suspect]
     Indication: HERPES SIMPLEX
     Route: 065
  4. FOSCARNET [Suspect]
     Indication: HERPES SIMPLEX
     Route: 065
  5. MISOPROSTOL [Suspect]
     Indication: LABOUR INDUCTION
     Dosage: 50UG FOUR TIMES PER DAY

REACTIONS (17)
  - Drug resistance [Recovered/Resolved]
  - Pyrexia [Unknown]
  - Hypoxia [Unknown]
  - Hepatic failure [Unknown]
  - Coagulopathy [Unknown]
  - Jaundice [Unknown]
  - Vaginal ulceration [Unknown]
  - Pancytopenia [Unknown]
  - Hypotension [Unknown]
  - Acute respiratory failure [Unknown]
  - Mental status changes [Unknown]
  - Hepatic encephalopathy [Unknown]
  - Herpes simplex meningoencephalitis [Unknown]
  - Hepatitis fulminant [Unknown]
  - Nervous system disorder [Unknown]
  - Blood lactic acid increased [Unknown]
  - Exposure during pregnancy [Unknown]
